FAERS Safety Report 4471916-5 (Version None)
Quarter: 2004Q4

REPORT INFORMATION
  Report Type: 
  Country: None (occurrence: None)
  Receive Date: 20041006
  Receipt Date: 20040923
  Transmission Date: 20050328
  Serious: Yes (Other)
  Sender: FDA-Public Use
  Company Number: 2004056753

PATIENT
  Age: 65 Year
  Sex: Male

DRUGS (1)
  1. NEURONTIN [Suspect]
     Indication: NEUROPATHY
     Dosage: 1800 MG (600 MG, 3 IN 1 D)
     Dates: end: 20040618

REACTIONS (3)
  - BONE MARROW DEPRESSION [None]
  - LEUKOPENIA [None]
  - POLYCYTHAEMIA VERA [None]
